FAERS Safety Report 7538460-X (Version None)
Quarter: 2011Q2

REPORT INFORMATION
  Report Type: 
  Country: None (occurrence: None)
  Receive Date: 20110609
  Receipt Date: 20110530
  Transmission Date: 20111010
  Serious: Yes (Hospitalization)
  Sender: FDA-Public Use
  Company Number: JP-MERCK-1106USA00277

PATIENT
  Age: 40 Year
  Sex: Male

DRUGS (2)
  1. PROPECIA [Suspect]
     Route: 048
  2. PHENYTOIN [Suspect]
     Route: 048

REACTIONS (2)
  - ANTIDEPRESSANT DRUG LEVEL DECREASED [None]
  - CONVULSION [None]
